FAERS Safety Report 7722623-4 (Version None)
Quarter: 2011Q3

REPORT INFORMATION
  Report Type: 
  Country: None (occurrence: None)
  Receive Date: 20110831
  Receipt Date: 20110822
  Transmission Date: 20111222
  Serious: Yes (Hospitalization)
  Sender: FDA-Public Use
  Company Number: JP-MERCK-1108USA03241

PATIENT
  Age: 73 Year
  Sex: Female

DRUGS (7)
  1. RABEPRAZOLE SODIUM [Concomitant]
     Route: 048
     Dates: end: 20110629
  2. SINGULAIR [Suspect]
     Route: 048
     Dates: start: 20110727, end: 20110804
  3. AMLODIPINE BESYLATE [Concomitant]
     Route: 048
     Dates: end: 20110629
  4. CANDESARTAN CILEXETIL [Concomitant]
     Route: 048
     Dates: start: 20110616, end: 20110629
  5. DISOPYRAMIDE PHOSPHATE [Concomitant]
     Route: 048
     Dates: end: 20110629
  6. THEO-DUR [Concomitant]
     Route: 048
     Dates: start: 20110610, end: 20110624
  7. SINGULAIR [Suspect]
     Indication: ASTHMA
     Route: 048
     Dates: start: 20110610, end: 20110623

REACTIONS (1)
  - PLATELET COUNT DECREASED [None]
